FAERS Safety Report 14319267 (Version 2)
Quarter: 2018Q1

REPORT INFORMATION
  Report Type: Report from Study
  Country: GT (occurrence: GT)
  Receive Date: 20171222
  Receipt Date: 20180109
  Transmission Date: 20180509
  Serious: No
  Sender: FDA-Public Use
  Company Number: PHHY2017GT189091

PATIENT
  Age: 53 Year
  Sex: Male

DRUGS (2)
  1. EXFORGE HCT [Suspect]
     Active Substance: AMLODIPINE BESYLATE\HYDROCHLOROTHIAZIDE\VALSARTAN
     Indication: HYPERTENSION
     Dosage: (AMLODIPINE 5 MG, HYDROCHLOROTHIAZIDE 25 MG, VALSARTAN 160 MG)
     Route: 048
  2. GALVUS MET [Suspect]
     Active Substance: METFORMIN HYDROCHLORIDE\VILDAGLIPTIN
     Indication: DIABETES MELLITUS
     Dosage: (METFORMIN 500 MG, VILDAGLIPTIN 50 MG)
     Route: 048

REACTIONS (1)
  - Limb injury [Unknown]
